FAERS Safety Report 19489379 (Version 1)
Quarter: 2021Q3

REPORT INFORMATION
  Report Type: Spontaneous
  Country: US (occurrence: US)
  Receive Date: 20210703
  Receipt Date: 20210703
  Transmission Date: 20211014
  Serious: Yes (Hospitalization, Other)
  Sender: FDA-Public Use
  Company Number: US-ACCORD-230372

PATIENT
  Age: 70 Year
  Sex: Female

DRUGS (2)
  1. MITOMYCIN. [Suspect]
     Active Substance: MITOMYCIN
     Indication: OVARIAN CANCER
     Route: 033
  2. CARBOPLATIN. [Suspect]
     Active Substance: CARBOPLATIN
     Indication: OVARIAN CANCER
     Route: 033

REACTIONS (3)
  - Off label use [Unknown]
  - Pancytopenia [Recovered/Resolved]
  - Toxic encephalopathy [Recovered/Resolved]
